FAERS Safety Report 10010555 (Version 3)
Quarter: 2014Q2

REPORT INFORMATION
  Report Type: Spontaneous
  Country: US (occurrence: US)
  Receive Date: 20140314
  Receipt Date: 20140418
  Transmission Date: 20141212
  Serious: Yes (Other)
  Sender: FDA-Public Use
  Company Number: US-PFIZER INC-2014072221

PATIENT
  Age: 52 Year
  Sex: Female

DRUGS (11)
  1. VENLAFAXINE ER [Suspect]
     Indication: DEPRESSION
     Dosage: 225 MG, DAILY
     Route: 048
  2. SIMVASTATIN [Concomitant]
     Dosage: UNK
  3. ASA [Concomitant]
     Dosage: UNK
  4. ATENOLOL [Concomitant]
     Dosage: UNK
  5. GILENYA [Concomitant]
     Dosage: UNK
  6. MIRALAX [Concomitant]
     Dosage: UNK
  7. NIACIN [Concomitant]
     Dosage: UNK
  8. AMPYRA [Concomitant]
     Dosage: UNK
  9. TIZANIDINE [Concomitant]
     Dosage: UNK
  10. NUVIGIL [Concomitant]
     Dosage: UNK
  11. CARBATROL [Concomitant]
     Dosage: UNK

REACTIONS (5)
  - Cellulitis [Unknown]
  - Fall [Unknown]
  - Peripheral swelling [Unknown]
  - Urinary tract infection [Unknown]
  - Drug withdrawal syndrome [Unknown]
